FAERS Safety Report 18584972 (Version 2)
Quarter: 2021Q1

REPORT INFORMATION
  Report Type: Report from Study
  Country: None (occurrence: US)
  Receive Date: 20201207
  Receipt Date: 20210311
  Transmission Date: 20210419
  Serious: Yes (Other)
  Sender: FDA-Public Use
  Company Number: US-ABBVIE-20K-163-3673246-00

PATIENT
  Age: 57 Year
  Sex: Male

DRUGS (2)
  1. HUMIRA [Suspect]
     Active Substance: ADALIMUMAB
     Indication: CROHN^S DISEASE
     Dosage: CITRATE FREE
     Route: 058
     Dates: start: 202012, end: 202102
  2. HUMIRA [Suspect]
     Active Substance: ADALIMUMAB
     Indication: CROHN^S DISEASE
     Route: 058

REACTIONS (7)
  - Hyperphagia [Unknown]
  - Infection [Unknown]
  - Injection site pain [Recovered/Resolved]
  - Intestinal perforation [Unknown]
  - Therapeutic product effect decreased [Not Recovered/Not Resolved]
  - Gastrointestinal disorder [Unknown]
  - Colon operation [Unknown]

NARRATIVE: CASE EVENT DATE: 2019
